FAERS Safety Report 5879988-8 (Version None)
Quarter: 2008Q3

REPORT INFORMATION
  Report Type: 
  Country: None (occurrence: None)
  Receive Date: 20080912
  Receipt Date: 20080908
  Transmission Date: 20090109
  Serious: No
  Sender: FDA-Public Use
  Company Number: US-PFIZER INC-2008053058

PATIENT
  Sex: Male
  Weight: 98 kg

DRUGS (9)
  1. SU-011,248 [Suspect]
     Indication: PROSTATE CANCER
     Route: 048
     Dates: start: 20080619
  2. CALCIUM WITH VITAMIN D [Concomitant]
     Route: 048
     Dates: start: 20040101
  3. LIPITOR [Concomitant]
     Route: 048
     Dates: start: 20000101
  4. LISINOPRIL [Concomitant]
     Route: 048
     Dates: start: 20000101
  5. MULTI-VITAMINS [Concomitant]
     Route: 048
     Dates: start: 20040101
  6. RANITIDINE [Concomitant]
     Route: 048
     Dates: start: 20060101
  7. SELENIUM [Concomitant]
     Route: 048
     Dates: start: 20040101
  8. VITAMIN E [Concomitant]
     Route: 048
     Dates: start: 20040101
  9. WELLBUTRIN [Concomitant]
     Route: 048
     Dates: start: 20080101

REACTIONS (1)
  - NO ADVERSE EVENT [None]
